FAERS Safety Report 10785797 (Version 3)
Quarter: 2015Q2

REPORT INFORMATION
  Report Type: Spontaneous
  Country: JP (occurrence: JP)
  Receive Date: 20150211
  Receipt Date: 20150422
  Transmission Date: 20150821
  Serious: Yes (Other)
  Sender: FDA-Public Use
  Company Number: JP-MYLANLABS-2015M1003758

PATIENT

DRUGS (2)
  1. PACLITAXEL. [Suspect]
     Active Substance: PACLITAXEL
     Indication: VAGINAL CANCER
     Dosage: WEEKLY 35MG/M2 FOR 5 WEEKS
     Route: 065
  2. CARBOPLATIN INJECTION 50 MG ^NK^ [Suspect]
     Active Substance: CARBOPLATIN
     Indication: VAGINAL CANCER
     Dosage: WEEKLY, AREA UNDER THE BLOOD CONCENTRATION TIME CURVE [AUC] = 5 FOR 5 WEEKS
     Route: 065

REACTIONS (4)
  - Diarrhoea [Recovered/Resolved]
  - Skin ulcer [Recovered/Resolved]
  - Neutropenia [Recovered/Resolved]
  - Anaemia [Recovered/Resolved]
